FAERS Safety Report 23142711 (Version 1)
Quarter: 2023Q4

REPORT INFORMATION
  Report Type: Spontaneous
  Country: None (occurrence: CN)
  Receive Date: 20231103
  Receipt Date: 20231103
  Transmission Date: 20240109
  Serious: Yes (Life-Threatening, Other)
  Sender: FDA-Public Use
  Company Number: CN-Jiangsu Hansoh Pharmaceutical Co., Ltd-2147775

PATIENT
  Age: 71 Year
  Sex: Male
  Weight: 64 kg

DRUGS (2)
  1. GEMCITABINE [Suspect]
     Active Substance: GEMCITABINE
     Indication: Malignant neoplasm of renal pelvis
     Route: 041
     Dates: start: 20230918, end: 20230925
  2. CISPLATIN [Suspect]
     Active Substance: CISPLATIN
     Route: 041
     Dates: start: 20230919, end: 20230919

REACTIONS (2)
  - Myelosuppression [Recovering/Resolving]
  - Off label use [Unknown]

NARRATIVE: CASE EVENT DATE: 20230918
